FAERS Safety Report 5722714-3 (Version None)
Quarter: 2008Q2

REPORT INFORMATION
  Report Type: 
  Country: None (occurrence: None)
  Receive Date: 20080429
  Receipt Date: 20070925
  Transmission Date: 20081010
  Serious: No
  Sender: FDA-Public Use
  Company Number: US-ASTRAZENECA-2007UW22488

PATIENT
  Age: 37 Year
  Sex: Female
  Weight: 77.3 kg

DRUGS (3)
  1. NEXIUM [Suspect]
     Route: 048
  2. EXCEDRIN (MIGRAINE) [Suspect]
     Route: 048
  3. VITAMINS [Concomitant]

REACTIONS (3)
  - FATIGUE [None]
  - HEADACHE [None]
  - MEDICATION ERROR [None]
